FAERS Safety Report 25331319 (Version 1)
Quarter: 2025Q2

REPORT INFORMATION
  Report Type: Spontaneous
  Country: GB (occurrence: GB)
  Receive Date: 20250519
  Receipt Date: 20250519
  Transmission Date: 20250716
  Serious: Yes (Hospitalization, Disabling, Other)
  Sender: REGENERON
  Company Number: GB-SA-2025SA139970

PATIENT
  Age: 78 Year
  Sex: Female

DRUGS (1)
  1. PRALUENT [Suspect]
     Active Substance: ALIROCUMAB
     Indication: Type IIa hyperlipidaemia
     Dosage: 150 MG, QOW, SOLUTION FOR INJECTION
     Route: 058

REACTIONS (5)
  - Paralysis [Unknown]
  - Movement disorder [Unknown]
  - Polymyalgia rheumatica [Unknown]
  - Pain [Unknown]
  - Disturbance in attention [Unknown]
